FAERS Safety Report 5087269-8 (Version None)
Quarter: 2006Q3

REPORT INFORMATION
  Report Type: 
  Country: None (occurrence: None)
  Receive Date: 20060801
  Receipt Date: 20050826
  Transmission Date: 20061208
  Serious: Yes (Life-Threatening)
  Sender: FDA-Public Use
  Company Number: OMPQ-PR-0508S-1221

PATIENT
  Age: 55 Year
  Sex: Female

DRUGS (1)
  1. OMNIPAQUE 140 [Suspect]
     Indication: ABDOMINAL PAIN
     Dosage: 96 ML, SINGLE DOSE, I.V.
     Route: 042
     Dates: start: 20050826, end: 20050826

REACTIONS (1)
  - ANAPHYLACTOID REACTION [None]
